FAERS Safety Report 14941832 (Version 1)
Quarter: 2018Q2

REPORT INFORMATION
  Report Type: Spontaneous
  Country: GB (occurrence: GB)
  Receive Date: 20180527
  Receipt Date: 20180527
  Transmission Date: 20180711
  Serious: Yes (Other)
  Sender: FDA-Public Use
  Company Number: PHHY2018GB006110

PATIENT
  Sex: Female

DRUGS (2)
  1. ESTRADOT [Suspect]
     Active Substance: ESTRADIOL
     Indication: PRODUCT USED FOR UNKNOWN INDICATION
     Dosage: 25 MG, UNK (PATCHES)
     Route: 065
  2. ESTRADOT [Suspect]
     Active Substance: ESTRADIOL
     Dosage: 50 MG, UNK (PATCHES)
     Route: 065

REACTIONS (3)
  - Drug prescribing error [Unknown]
  - Drug dependence [Unknown]
  - Drug ineffective [Unknown]
